FAERS Safety Report 15032265 (Version 4)
Quarter: 2020Q3

REPORT INFORMATION
  Report Type: Report from Study
  Country: None (occurrence: AU)
  Receive Date: 20180619
  Receipt Date: 20200812
  Transmission Date: 20201102
  Serious: Yes (Hospitalization)
  Sender: FDA-Public Use
  Company Number: AU-ABBVIE-18P-008-2385862-00

PATIENT
  Age: 72 Year
  Sex: Female

DRUGS (38)
  1. BORTEZOMIB. [Suspect]
     Active Substance: BORTEZOMIB
     Dosage: DAY 1, 4, 8, AND 11 OF A 21 DAY CYCLE
     Route: 058
     Dates: start: 20171026, end: 20171204
  2. RANITIDINE. [Concomitant]
     Active Substance: RANITIDINE
     Indication: GASTROOESOPHAGEAL REFLUX PROPHYLAXIS
     Route: 048
     Dates: start: 20170605
  3. CALAMIN LOTION [Concomitant]
     Indication: PRURITUS
     Route: 061
     Dates: start: 20180608
  4. DEXAMETHASONE. [Suspect]
     Active Substance: DEXAMETHASONE
     Dosage: DAYS 1, 2, 8, 9, 15, 16, 22, AND 23 OF A 35? DAY CYCLE
     Route: 048
     Dates: start: 20180416, end: 20180508
  5. VALTREX [Concomitant]
     Active Substance: VALACYCLOVIR HYDROCHLORIDE
     Indication: ANTIVIRAL PROPHYLAXIS
     Route: 048
     Dates: start: 20170518
  6. MAXOLON [Concomitant]
     Active Substance: METOCLOPRAMIDE HYDROCHLORIDE
     Indication: PROPHYLAXIS OF NAUSEA AND VOMITING
     Route: 048
     Dates: start: 20170529, end: 20171213
  7. IMODIUM [Concomitant]
     Active Substance: LOPERAMIDE HYDROCHLORIDE
     Indication: DIARRHOEA
     Route: 048
     Dates: start: 201707
  8. BION TEARS [Concomitant]
     Active Substance: DEXTRAN 70\HYPROMELLOSE 2910 (4000 MPA.S)
     Indication: GLAUCOMA
     Route: 031
     Dates: start: 20171212
  9. LORATIDINE [Concomitant]
     Active Substance: LORATADINE
     Indication: PRURITUS
     Route: 048
     Dates: start: 20180608
  10. FILGRASTINE [Concomitant]
     Active Substance: FILGRASTIM
     Indication: NEUTROPHIL COUNT DECREASED
     Route: 058
     Dates: start: 20180312
  11. TEMAZEPAM. [Concomitant]
     Active Substance: TEMAZEPAM
     Indication: INSOMNIA
     Route: 048
     Dates: start: 20170622
  12. MOVICOL [Concomitant]
     Active Substance: POLYETHYLENE GLYCOL 3350\POTASSIUM CHLORIDE\SODIUM BICARBONATE\SODIUM CHLORIDE
     Indication: CONSTIPATION
     Route: 048
     Dates: start: 20170605
  13. LUMIGAN [Concomitant]
     Active Substance: BIMATOPROST
     Indication: GLAUCOMA
     Route: 031
     Dates: start: 20171212
  14. VENETOCLAX. [Suspect]
     Active Substance: VENETOCLAX
     Route: 048
     Dates: start: 20171224, end: 20180520
  15. VENETOCLAX. [Suspect]
     Active Substance: VENETOCLAX
     Route: 048
     Dates: start: 20180613
  16. BORTEZOMIB. [Suspect]
     Active Substance: BORTEZOMIB
     Dosage: DAY 1, 8, 15, AND 22 OF A 35 DAY CYCLE
     Route: 058
     Dates: start: 20171227, end: 20180604
  17. DEXAMETHASONE. [Suspect]
     Active Substance: DEXAMETHASONE
     Dosage: DAYS 1, 2, 8, 9, 15, 16, 22, AND 23 OF A 35? DAY CYCLE
     Route: 048
     Dates: start: 20180625
  18. MAXOLON [Concomitant]
     Active Substance: METOCLOPRAMIDE HYDROCHLORIDE
     Indication: PROPHYLAXIS OF NAUSEA AND VOMITING
     Route: 048
     Dates: start: 20171215
  19. ESOMEPRAZOLE. [Concomitant]
     Active Substance: ESOMEPRAZOLE MAGNESIUM
     Indication: GASTROOESOPHAGEAL REFLUX PROPHYLAXIS
     Route: 048
     Dates: start: 20171215
  20. BORTEZOMIB. [Suspect]
     Active Substance: BORTEZOMIB
     Dosage: DAY 1, 4, 8, AND 11 OF A 21 DAY CYCLE
     Route: 058
     Dates: start: 20170710, end: 20170828
  21. DEXAMETHASONE. [Suspect]
     Active Substance: DEXAMETHASONE
     Indication: PLASMA CELL MYELOMA
     Dosage: DAYS 1, 2, 4, 5, 8, 9, 11, AND 12 OF A 21 DAY CYCLE
     Route: 048
     Dates: start: 20170529, end: 20170630
  22. DEXAMETHASONE. [Suspect]
     Active Substance: DEXAMETHASONE
     Dosage: DAYS 1, 2, 8, 9, 15, 16, 22, AND 23 OF A 35? DAY CYCLE
     Route: 048
     Dates: start: 20180528, end: 20180605
  23. ALLOPURINOL. [Concomitant]
     Active Substance: ALLOPURINOL
     Indication: PROPHYLAXIS
     Route: 048
     Dates: start: 20170515
  24. ESOMEPRAZOLE. [Concomitant]
     Active Substance: ESOMEPRAZOLE MAGNESIUM
     Indication: ANTACID THERAPY
     Route: 048
     Dates: start: 20170731, end: 20171213
  25. VENETOCLAX. [Suspect]
     Active Substance: VENETOCLAX
     Route: 048
     Dates: start: 20180528, end: 20180611
  26. DEXAMETHASONE. [Suspect]
     Active Substance: DEXAMETHASONE
     Dosage: DAYS 1, 2, 4, 5, 8, 9, 11, AND 12 OF A 21 DAY CYCLE
     Route: 048
     Dates: start: 20170710, end: 20180327
  27. DEXAMETHASONE. [Suspect]
     Active Substance: DEXAMETHASONE
     Dosage: DAYS 1, 2, 8, 9, 15, 16, 22, AND 23 OF A 35? DAY CYCLE
     Route: 048
     Dates: start: 20180403, end: 20180404
  28. RESPRIM [Concomitant]
     Active Substance: SULFAMETHOXAZOLE\TRIMETHOPRIM
     Indication: INFECTION PROPHYLAXIS
     Route: 048
     Dates: start: 20170518
  29. PANADOL [Concomitant]
     Active Substance: ACETAMINOPHEN
     Indication: MUSCULOSKELETAL PAIN
     Route: 048
     Dates: start: 20170910
  30. FLUDROCORTISONE [Concomitant]
     Active Substance: FLUDROCORTISONE
     Indication: ORTHOSTATIC HYPOTENSION
     Route: 048
     Dates: start: 20180304, end: 20180306
  31. FLUDROCORTISONE [Concomitant]
     Active Substance: FLUDROCORTISONE
     Route: 048
     Dates: start: 20171003
  32. ZOMETA [Concomitant]
     Active Substance: ZOLEDRONIC ACID
     Indication: PROPHYLAXIS
     Route: 042
     Dates: start: 20170601
  33. COLOXYL [Concomitant]
     Indication: CONSTIPATION
     Route: 048
     Dates: start: 20170605
  34. TIMOLOL EYE DROPS [Concomitant]
     Indication: VISION BLURRED
     Route: 031
     Dates: start: 20180526
  35. VENETOCLAX. [Suspect]
     Active Substance: VENETOCLAX
     Indication: PLASMA CELL MYELOMA
     Route: 048
     Dates: start: 20170529, end: 20171127
  36. BORTEZOMIB. [Suspect]
     Active Substance: BORTEZOMIB
     Indication: PLASMA CELL MYELOMA
     Dosage: DAY 1, 4, 8, AND 11 OF A 21 DAY CYCLE
     Route: 058
     Dates: start: 20170529, end: 20170629
  37. BORTEZOMIB. [Suspect]
     Active Substance: BORTEZOMIB
     Dosage: DAY 1, 4, 8, AND 11 OF A 21 DAY CYCLE
     Route: 058
     Dates: start: 20170831, end: 20171023
  38. BORTEZOMIB. [Suspect]
     Active Substance: BORTEZOMIB
     Dosage: DAY 1, 8, 15, AND 22 OF A 35 DAY CYCLE
     Route: 058
     Dates: start: 20180625

REACTIONS (2)
  - Rhinovirus infection [Recovered/Resolved]
  - Pneumonia viral [Recovered/Resolved]

NARRATIVE: CASE EVENT DATE: 20180610
